FAERS Safety Report 15744804 (Version 1)
Quarter: 2018Q4

REPORT INFORMATION
  Report Type: Spontaneous
  Country: US (occurrence: US)
  Receive Date: 20181220
  Receipt Date: 20181220
  Transmission Date: 20190205
  Serious: Yes (Hospitalization)
  Sender: FDA-Public Use
  Company Number: None

PATIENT
  Age: 79 Year

DRUGS (20)
  1. FUROSEMIDE. [Concomitant]
     Active Substance: FUROSEMIDE
  2. DICYCLOMINE [Concomitant]
     Active Substance: DICYCLOMINE HYDROCHLORIDE
  3. POT CHLORIDE [Concomitant]
     Active Substance: POTASSIUM CHLORIDE
  4. ONDANSETRON [Concomitant]
     Active Substance: ONDANSETRON
  5. GABAPENTIN. [Concomitant]
     Active Substance: GABAPENTIN
  6. VORICONAZOLE. [Concomitant]
     Active Substance: VORICONAZOLE
  7. JADENU [Suspect]
     Active Substance: DEFERASIROX
     Indication: TRANSFUSION REACTION
     Route: 048
     Dates: start: 20180503
  8. POLYMYXIN [Concomitant]
     Active Substance: POLYMYXIN
  9. FUROSEMIDE. [Concomitant]
     Active Substance: FUROSEMIDE
  10. MIRTAZAPINE. [Concomitant]
     Active Substance: MIRTAZAPINE
  11. ACYCLOVIR. [Concomitant]
     Active Substance: ACYCLOVIR
  12. MINOCYCCLINE [Concomitant]
  13. PANTOPRAZOLE [Concomitant]
     Active Substance: PANTOPRAZOLE
  14. NATEGLINDE [Concomitant]
  15. ONDANSETRON [Concomitant]
     Active Substance: ONDANSETRON
  16. METFORMIN [Concomitant]
     Active Substance: METFORMIN HYDROCHLORIDE
  17. METRONIDAZOL [Concomitant]
     Active Substance: METRONIDAZOLE
  18. LISINOPRIL. [Concomitant]
     Active Substance: LISINOPRIL
  19. DESENEX SHAK [Concomitant]
  20. ROSUVASTATIN. [Concomitant]
     Active Substance: ROSUVASTATIN

REACTIONS (3)
  - Dysphagia [None]
  - Blood sodium decreased [None]
  - Urinary tract infection [None]

NARRATIVE: CASE EVENT DATE: 20181219
